FAERS Safety Report 7363213-5 (Version None)
Quarter: 2011Q1

REPORT INFORMATION
  Report Type: 
  Country: None (occurrence: None)
  Receive Date: 20110321
  Receipt Date: 20110311
  Transmission Date: 20110831
  Serious: Yes (Other)
  Sender: FDA-Public Use
  Company Number: JP-ASTELLAS-2011JP001822

PATIENT
  Age: 3 Year
  Sex: Female

DRUGS (6)
  1. FLUDARA [Concomitant]
     Dosage: 120 MG/M2, UNKNOWN/D
     Route: 065
  2. ANTI-THYMOCYTE GLOBULIN NOS [Concomitant]
     Dosage: 5 MG/KG, UNKNOWN/D
     Route: 065
  3. MELPHALAN HYDROCHLORIDE [Concomitant]
     Dosage: 140 MG/M2, UNKNOWN/D
     Route: 065
  4. METHOTREXATE [Concomitant]
     Indication: PROPHYLAXIS AGAINST GRAFT VERSUS HOST DISEASE
     Route: 065
  5. PROGRAF [Suspect]
     Indication: PROPHYLAXIS AGAINST GRAFT VERSUS HOST DISEASE
     Route: 065
  6. ANTI-THYMOCYTE GLOBULIN NOS [Concomitant]
     Dosage: 10 MG/KG, UNKNOWN/D
     Route: 065

REACTIONS (3)
  - CYTOMEGALOVIRUS VIRAEMIA [None]
  - CHRONIC GRAFT VERSUS HOST DISEASE [None]
  - DRUG INEFFECTIVE [None]
